FAERS Safety Report 7767880 (Version 2)
Quarter: 2013Q1

REPORT INFORMATION
  Report Type: Report from Study
  Country: NZ (occurrence: NZ)
  Receive Date: 20110120
  Receipt Date: 20130121
  Transmission Date: 20140127
  Serious: Yes (Other)
  Sender: FDA-Public Use
  Company Number: NZ-PURDUE-USA-2011-0062229

PATIENT
  Age: 71 Year
  Sex: Female

DRUGS (9)
  1. BTDS PATCH [Suspect]
     Dosage: UNK
     Route: 062
     Dates: start: 20100928, end: 20101220
  2. METFORMIN [Concomitant]
     Dosage: UNK
     Dates: start: 2005
  3. CILAZAPRIL [Concomitant]
     Dosage: UNK
     Dates: start: 2009
  4. OMEPRAZOLE [Concomitant]
     Dosage: UNK
     Dates: start: 2008
  5. SIMVASTATIN [Concomitant]
     Dosage: UNK
     Dates: start: 2008
  6. TRIAZOLAM [Concomitant]
     Dosage: UNK
     Dates: start: 20100810
  7. LOPERAMIDE [Concomitant]
     Dosage: UNK
     Dates: start: 2005
  8. PARACETAMOL [Concomitant]
     Dosage: UNK
     Dates: start: 2009
  9. AMITRIPTYLINE [Concomitant]
     Indication: NEURALGIA
     Dosage: UNK UNK, DAILY
     Route: 062
     Dates: start: 20101221, end: 20101223

REACTIONS (1)
  - Supraventricular tachycardia [Recovered/Resolved]
